FAERS Safety Report 5154426-1 (Version None)
Quarter: 2006Q4

REPORT INFORMATION
  Report Type: 
  Country: None (occurrence: None)
  Receive Date: 20061114
  Receipt Date: 20061101
  Transmission Date: 20070319
  Serious: Yes (Other)
  Sender: FDA-Public Use
  Company Number: 2006134714

PATIENT
  Sex: Female

DRUGS (4)
  1. FELDENE [Suspect]
     Indication: PNEUMONIA
     Dosage: ORAL
     Route: 048
     Dates: start: 20030101
  2. MELOXICAM [Suspect]
     Indication: PAIN
     Dosage: ORAL
     Route: 048
     Dates: start: 20061017, end: 20061017
  3. POLYCARBOPHIL CALCIUM (POLYCARBOPHIL CALCIUM) [Concomitant]
  4. TYLEX (CARBINOXAMINE MALEATE, PARACETAMOL, PHENYLEPHRINE HYDROCHLORIDE [Concomitant]

REACTIONS (9)
  - ARTICULAR CALCIFICATION [None]
  - CONDITION AGGRAVATED [None]
  - CONFUSIONAL STATE [None]
  - CONVULSION [None]
  - DIVERTICULUM [None]
  - GAIT DISTURBANCE [None]
  - HYPERTENSION [None]
  - MUSCLE ATROPHY [None]
  - VOMITING [None]
